FAERS Safety Report 12080802 (Version 1)
Quarter: 2016Q1

REPORT INFORMATION
  Report Type: Spontaneous
  Country: JP (occurrence: JP)
  Receive Date: 20160216
  Receipt Date: 20160216
  Transmission Date: 20160526
  Serious: Yes (Other)
  Sender: FDA-Public Use
  Company Number: JP-BAYER-2016-030109

PATIENT
  Sex: Male
  Weight: 1.95 kg

DRUGS (1)
  1. ACETYLSALICYLIC ACID({=100 MG) [Suspect]
     Active Substance: ASPIRIN
     Route: 064

REACTIONS (3)
  - Low birth weight baby [None]
  - Foetal exposure timing unspecified [Recovered/Resolved]
  - Premature baby [None]
